FAERS Safety Report 15881607 (Version 8)
Quarter: 2020Q4

REPORT INFORMATION
  Report Type: Report from Study
  Country: US (occurrence: US)
  Receive Date: 20190128
  Receipt Date: 20201111
  Transmission Date: 20210113
  Serious: Yes (Hospitalization, Disabling, Other)
  Sender: FDA-Public Use
  Company Number: US-SA-2019SA019595

PATIENT

DRUGS (5)
  1. TERIFLUNOMIDE. [Suspect]
     Active Substance: TERIFLUNOMIDE
     Dosage: 14 MG, QD
     Route: 048
     Dates: start: 201908
  2. TERIFLUNOMIDE. [Suspect]
     Active Substance: TERIFLUNOMIDE
     Dosage: 14 MG, QD
     Route: 048
     Dates: start: 20171221, end: 201908
  3. GABAPENTIN. [Suspect]
     Active Substance: GABAPENTIN
     Dosage: UNK UNK, HS (AT BEDTIME)
     Route: 065
  4. TERIFLUNOMIDE. [Suspect]
     Active Substance: TERIFLUNOMIDE
     Indication: MULTIPLE SCLEROSIS
     Dosage: 14 MG, QD
     Route: 048
     Dates: start: 20171206
  5. GABAPENTIN. [Suspect]
     Active Substance: GABAPENTIN
     Indication: DISCOMFORT
     Dosage: UNK UNK, TID
     Route: 065

REACTIONS (16)
  - Neck surgery [Unknown]
  - Emphysema [Unknown]
  - Dysphagia [Unknown]
  - Clostridium difficile infection [Unknown]
  - Memory impairment [Unknown]
  - Thrombosis [Unknown]
  - Nasopharyngitis [Unknown]
  - Product dose omission in error [Unknown]
  - Feeling abnormal [Unknown]
  - Discomfort [Unknown]
  - Gait disturbance [Unknown]
  - Intervertebral disc protrusion [Unknown]
  - Urinary incontinence [Unknown]
  - Somnolence [Unknown]
  - Spinal stenosis [Unknown]
  - Pulmonary embolism [Unknown]

NARRATIVE: CASE EVENT DATE: 20190109
